FAERS Safety Report 10069027 (Version 1)
Quarter: 2014Q2

REPORT INFORMATION
  Report Type: Report from Study
  Country: LB (occurrence: LB)
  Receive Date: 20140409
  Receipt Date: 20140409
  Transmission Date: 20141212
  Serious: Yes (Death)
  Sender: FDA-Public Use
  Company Number: PHHY2014LB042757

PATIENT
  Age: 94 Year
  Sex: Female

DRUGS (4)
  1. ACLASTA [Suspect]
     Dosage: UNK
     Route: 042
  2. CAPOTEN [Concomitant]
     Dosage: 25 MG, UNK
     Route: 048
  3. ZYLORIC [Concomitant]
     Dosage: 300 MG, UNK
     Route: 048
  4. CALCIUM W/VITAMINS NOS [Concomitant]
     Dosage: 1 DF, UNK
     Route: 048

REACTIONS (1)
  - Death [Fatal]
